FAERS Safety Report 7843778 (Version 3)
Quarter: 2013Q4

REPORT INFORMATION
  Report Type: Spontaneous
  Country: US (occurrence: US)
  Receive Date: 20110307
  Receipt Date: 20131119
  Transmission Date: 20140711
  Serious: Yes (Other)
  Sender: FDA-Public Use
  Company Number: US-JNJFOC-20100804729

PATIENT
  Age: 36 Year
  Sex: Male

DRUGS (2)
  1. LEVAQUIN [Suspect]
     Indication: CANDIDA INFECTION
     Route: 048
     Dates: start: 20020101, end: 20041231
  2. LEVAQUIN [Suspect]
     Indication: PRODUCT USED FOR UNKNOWN INDICATION
     Route: 048
     Dates: start: 20040825

REACTIONS (5)
  - Epicondylitis [Unknown]
  - Tendonitis [Unknown]
  - Tendonitis [Unknown]
  - Off label use [Unknown]
  - Tendonitis [Unknown]
